FAERS Safety Report 6049543-8 (Version None)
Quarter: 2009Q1

REPORT INFORMATION
  Report Type: 
  Country: None (occurrence: None)
  Receive Date: 20090121
  Receipt Date: 20090108
  Transmission Date: 20090719
  Serious: Yes (Other)
  Sender: FDA-Public Use
  Company Number: VISP-NO-0603S-0171

PATIENT
  Age: 27 Year
  Sex: Female
  Weight: 131 kg

DRUGS (3)
  1. VISIPAQUE [Suspect]
     Indication: SHUNT THROMBOSIS
     Dosage: 150 ML, SINGLE DOSE, I.V.
     Route: 042
     Dates: start: 20060206, end: 20060206
  2. MORPHINE [Concomitant]
  3. HEPARIN SODIUM [Concomitant]

REACTIONS (5)
  - DRUG ERUPTION [None]
  - DRUG HYPERSENSITIVITY [None]
  - FIXED ERUPTION [None]
  - PRURITUS [None]
  - RASH ERYTHEMATOUS [None]
